FAERS Safety Report 8363324-1 (Version None)
Quarter: 2012Q2

REPORT INFORMATION
  Report Type: 
  Country: None (occurrence: None)
  Receive Date: 20120515
  Receipt Date: 20120515
  Transmission Date: 20120825
  Serious: No
  Sender: FDA-Public Use
  Company Number: None

PATIENT
  Age: 75 Year
  Sex: Male
  Weight: 62.8 kg

DRUGS (1)
  1. DABIGATRAN [Suspect]
     Indication: ATRIAL FIBRILLATION
     Dates: start: 20120301, end: 20120330

REACTIONS (3)
  - VOMITING [None]
  - NAUSEA [None]
  - DRUG INTOLERANCE [None]
